FAERS Safety Report 4957569-8 (Version None)
Quarter: 2006Q1

REPORT INFORMATION
  Report Type: 
  Country: None (occurrence: None)
  Receive Date: 20060330
  Receipt Date: 20051230
  Transmission Date: 20060701
  Serious: No
  Sender: FDA-Public Use
  Company Number: US-BRISTOL-MYERS SQUIBB COMPANY-13232905

PATIENT
  Age: 12 Year
  Sex: Male
  Weight: 45 kg

DRUGS (2)
  1. BARACLUDE [Suspect]
     Route: 048
     Dates: start: 20051230, end: 20051230
  2. ALLEGRA [Concomitant]
     Indication: MULTIPLE ALLERGIES

REACTIONS (2)
  - ACCIDENTAL EXPOSURE [None]
  - HICCUPS [None]
